FAERS Safety Report 6402436-6 (Version None)
Quarter: 2009Q4

REPORT INFORMATION
  Report Type: 
  Country: None (occurrence: None)
  Receive Date: 20091015
  Receipt Date: 20091007
  Transmission Date: 20100525
  Serious: Yes (Death, Other)
  Sender: FDA-Public Use
  Company Number: TR-ELI_LILLY_AND_COMPANY-TR200910001336

PATIENT
  Age: 47 Year
  Sex: Female

DRUGS (1)
  1. LISPRO 25LIS75NPL [Suspect]
     Indication: DIABETES MELLITUS
     Dosage: UNK UNK, UNKNOWN
     Route: 058
     Dates: start: 20090401, end: 20090505

REACTIONS (1)
  - NEOPLASM MALIGNANT [None]
